FAERS Safety Report 19397419 (Version 1)
Quarter: 2021Q2

REPORT INFORMATION
  Report Type: Spontaneous
  Country: US (occurrence: US)
  Receive Date: 20210609
  Receipt Date: 20210609
  Transmission Date: 20210717
  Serious: Yes (Life-Threatening, Hospitalization)
  Sender: FDA-Public Use
  Company Number: US-ALLERMED LABORATORIES, INC.-2112547

PATIENT
  Age: 49 Year
  Sex: Male
  Weight: 78.64 kg

DRUGS (15)
  1. STANDARDIZED PERENNIAL RYEGRASS GRASS POLLEN [Suspect]
     Active Substance: LOLIUM PERENNE POLLEN
     Route: 058
     Dates: start: 20201123, end: 20210506
  2. EPINEPHRINE. [Concomitant]
     Active Substance: EPINEPHRINE
     Route: 030
  3. STANDARDIZED BERMUDA GRASS [Suspect]
     Active Substance: CYNODON DACTYLON POLLEN
     Indication: RHINITIS ALLERGIC
     Route: 058
     Dates: start: 20201123, end: 20210506
  4. VIRGINIA LIVE OAK [Suspect]
     Active Substance: QUERCUS VIRGINIANA POLLEN
     Route: 058
     Dates: start: 20201123, end: 20210506
  5. POLLENS ? TREES, BAYBERRY/WAX MYRTLE MORELLA CERIFERA [Suspect]
     Active Substance: MORELLA CERIFERA POLLEN
     Route: 058
     Dates: start: 20201123, end: 20210506
  6. SYMBICORT [Concomitant]
     Active Substance: BUDESONIDE\FORMOTEROL FUMARATE DIHYDRATE
     Route: 055
  7. BUDESONIDE. [Concomitant]
     Active Substance: BUDESONIDE
     Route: 055
  8. STANDARDIZED SHORT RAGWEED POLLEN [Suspect]
     Active Substance: AMBROSIA ARTEMISIIFOLIA POLLEN
     Route: 058
     Dates: start: 20201123, end: 20210506
  9. ALPRAZOLAM. [Concomitant]
     Active Substance: ALPRAZOLAM
     Route: 048
  10. MONTELUKAST [Concomitant]
     Active Substance: MONTELUKAST SODIUM
     Route: 048
  11. POLLENS ? WEEDS AND GARDEN PLANTS, COCKLEBUR XANTHIUM STRUMARIUM [Suspect]
     Active Substance: XANTHIUM STRUMARIUM POLLEN
     Route: 058
     Dates: start: 20201123, end: 20210506
  12. ANIMAL ALLERGENS, MOUSE EPITHELIA MUS MUSCULUS [Suspect]
     Active Substance: MUS MUSCULUS SKIN
     Route: 058
     Dates: start: 20201123, end: 20210506
  13. SPIRIVA RESPIMAT [Concomitant]
     Active Substance: TIOTROPIUM BROMIDE
     Route: 055
  14. ALBUTEROL. [Concomitant]
     Active Substance: ALBUTEROL
     Route: 055
  15. POLLENS ? WEEDS AND GARDEN PLANTS, DOG FENNEL EUPATORIUM CAPILLIFOLIUM [Suspect]
     Active Substance: EUPATORIUM CAPILLIFOLIUM POLLEN
     Route: 058
     Dates: start: 20201123, end: 20210506

REACTIONS (1)
  - Anaphylactic reaction [Recovered/Resolved]

NARRATIVE: CASE EVENT DATE: 20210506
